FAERS Safety Report 19753747 (Version 1)
Quarter: 2021Q3

REPORT INFORMATION
  Report Type: Spontaneous
  Country: US (occurrence: US)
  Receive Date: 20210826
  Receipt Date: 20210826
  Transmission Date: 20211014
  Serious: No
  Sender: FDA-Public Use
  Company Number: None

PATIENT
  Age: 70 Year
  Sex: Female
  Weight: 78.93 kg

DRUGS (4)
  1. GAMUNEX?C [Suspect]
     Active Substance: HUMAN IMMUNOGLOBULIN G
  2. EPINPHRINE1MG [Concomitant]
  3. FEXOFENADINE 180MG [Concomitant]
     Active Substance: FEXOFENADINE HYDROCHLORIDE
  4. DIPHENHYDRAMINE 50MG [Concomitant]
     Active Substance: DIPHENHYDRAMINE

REACTIONS (1)
  - Rash [None]

NARRATIVE: CASE EVENT DATE: 20210819
